FAERS Safety Report 5528087-3 (Version None)
Quarter: 2007Q4

REPORT INFORMATION
  Report Type: 
  Country: None (occurrence: None)
  Receive Date: 20071121
  Receipt Date: 20071106
  Transmission Date: 20080405
  Serious: Yes (Hospitalization)
  Sender: FDA-Public Use
  Company Number: S07-FRA-03165-01

PATIENT
  Age: 55 Year
  Sex: Female

DRUGS (9)
  1. ESCITALOPRAM [Suspect]
     Indication: DEPRESSION
     Dosage: 10 MG BID PO
     Route: 048
     Dates: start: 20060101, end: 20070531
  2. PAROXETINE HCL [Concomitant]
     Indication: DEPRESSION
     Dosage: 20 MG QD PO
     Route: 048
     Dates: start: 20070219, end: 20070501
  3. ANAFRANIL [Suspect]
     Indication: DEPRESSION
     Dosage: 25 MG QD PO
     Route: 048
     Dates: start: 20020101, end: 20070501
  4. METFORMIN HCL [Concomitant]
     Indication: TYPE 2 DIABETES MELLITUS
     Dosage: 2000 MG QD PO
     Route: 048
     Dates: start: 20070101, end: 20070523
  5. COZAAR [Concomitant]
  6. CARDENSIEL (BISOPROLOL) [Concomitant]
  7. MEDIATOR (BENFLUOREX HYDROCHLORIDE) [Concomitant]
  8. ATORVASTATIN CALCIUM [Concomitant]
  9. LOSARTAN POTASSIUM [Concomitant]

REACTIONS (1)
  - GRAND MAL CONVULSION [None]
